FAERS Safety Report 7990417-0 (Version None)
Quarter: 2011Q4

REPORT INFORMATION
  Report Type: 
  Country: None (occurrence: None)
  Receive Date: 20111219
  Receipt Date: 20111004
  Transmission Date: 20120403
  Serious: No
  Sender: FDA-Public Use
  Company Number: US-ASTRAZENECA-2011SE59609

PATIENT
  Sex: Female

DRUGS (9)
  1. CRESTOR [Suspect]
     Route: 048
  2. INSULIN [Concomitant]
  3. VIT D-3 [Concomitant]
  4. NIASPAN [Suspect]
     Indication: LOW DENSITY LIPOPROTEIN INCREASED
     Route: 048
  5. METOPROLOL TARTRATE [Concomitant]
  6. NIASPAN [Suspect]
     Route: 048
  7. ACETAMINOPHEN [Concomitant]
  8. LEVALOR [Suspect]
     Route: 065
  9. UNKNOWN MEDICATION [Concomitant]

REACTIONS (2)
  - MYALGIA [None]
  - GOUT [None]
